FAERS Safety Report 11030896 (Version 1)
Quarter: 2015Q2

REPORT INFORMATION
  Report Type: Spontaneous
  Country: US (occurrence: None)
  Receive Date: 20150414
  Receipt Date: 20150414
  Transmission Date: 20150821
  Serious: No
  Sender: FDA-Public Use
  Company Number: None

PATIENT
  Age: 61 Year
  Sex: Male

DRUGS (1)
  1. ESCITALOPRAM [Suspect]
     Active Substance: ESCITALOPRAM OXALATE
     Indication: BIPOLAR I DISORDER
     Route: 048
     Dates: start: 20121212, end: 20150128

REACTIONS (3)
  - Suicidal ideation [None]
  - Agitation [None]
  - Drug ineffective [None]

NARRATIVE: CASE EVENT DATE: 20150128
